FAERS Safety Report 5305755-X (Version None)
Quarter: 2007Q2

REPORT INFORMATION
  Report Type: 
  Country: None (occurrence: None)
  Receive Date: 20070424
  Receipt Date: 20070416
  Transmission Date: 20071010
  Serious: Yes (Hospitalization)
  Sender: FDA-Public Use
  Company Number: FR-ELI_LILLY_AND_COMPANY-FR200704003251

PATIENT
  Age: 74 Year
  Sex: Male
  Weight: 69 kg

DRUGS (7)
  1. ALIMTA [Suspect]
     Indication: LUNG ADENOCARCINOMA
     Dosage: 760 MG, OTHER
     Route: 042
     Dates: start: 20070216, end: 20070216
  2. KARDEGIC /FRA/ [Concomitant]
     Dosage: 75 MG, DAILY (1/D)
     Route: 048
  3. OMEPRAZOLE [Concomitant]
     Dosage: 20 MG, DAILY (1/D)
     Route: 048
  4. KREDEX [Concomitant]
     Indication: HYPERTENSION
     Dosage: 12.5 MG, 2/D
     Route: 048
  5. CRESTOR [Concomitant]
     Indication: LIPID METABOLISM DISORDER
     Dosage: 10 MG, DAILY (1/D)
     Route: 048
  6. LARGACTIL [Concomitant]
     Dosage: 5 MG, 3/D
     Route: 048
  7. DOLIPRANE [Concomitant]
     Indication: PAIN
     Dosage: 1 G, 3/D
     Route: 065

REACTIONS (3)
  - GENERAL PHYSICAL HEALTH DETERIORATION [None]
  - ORAL FUNGAL INFECTION [None]
  - RASH MACULO-PAPULAR [None]
